FAERS Safety Report 9630728 (Version 1)
Quarter: 2013Q4

REPORT INFORMATION
  Report Type: Spontaneous
  Country: US (occurrence: None)
  Receive Date: 20131015
  Receipt Date: 20131015
  Transmission Date: 20140711
  Serious: Yes (Hospitalization)
  Sender: FDA-Public Use
  Company Number: FK201304539

PATIENT
  Age: 39 Year
  Sex: Female

DRUGS (5)
  1. DOXORUBICIN (MANUFACTURER UNKNOWN) (DOXORUBICIN HYDROCHLORIDE) (DOXORUBICIN HYDROCHLORIDE) [Suspect]
     Indication: EWING^S SARCOMA
     Dosage: 14 CYCLES OVER 9 MONTHS
  2. ETOPOSIDE [Suspect]
     Indication: EWING^S SARCOMA
     Dosage: 2 WK
  3. IFOSFAMIDE [Suspect]
     Indication: EWING^S SARCOMA
     Dosage: 2 WK
  4. CYCLOPHOSPHAMIDE [Suspect]
     Indication: EWING^S SARCOMA
     Dosage: 14 CYCLES OVER 9 MONTHS
  5. VINCRISTINE [Suspect]
     Indication: EWING^S SARCOMA
     Dosage: 14 CYCLES OVER 9 MONTHS

REACTIONS (4)
  - Syncope [None]
  - Febrile neutropenia [None]
  - Diarrhoea [None]
  - Anaemia [None]
